FAERS Safety Report 9765043 (Version 3)
Quarter: 2014Q1

REPORT INFORMATION
  Report Type: Spontaneous
  Country: US (occurrence: US)
  Receive Date: 20131217
  Receipt Date: 20140129
  Transmission Date: 20141002
  Serious: Yes (Other)
  Sender: FDA-Public Use
  Company Number: US-SA-2013SA129454

PATIENT
  Age: 50 Year
  Sex: Female
  Weight: 56.6 kg

DRUGS (3)
  1. CEREZYME [Suspect]
     Indication: GAUCHER^S DISEASE
     Route: 042
     Dates: start: 199812
  2. CEREZYME [Suspect]
     Indication: GAUCHER^S DISEASE
     Dosage: DOSE:42.4 UNIT(S)/KILOGRAM BODYWEIGHT
     Route: 042
     Dates: start: 201311
  3. ELELYSO [Concomitant]
     Dates: end: 201311

REACTIONS (1)
  - Invasive ductal breast carcinoma [Unknown]
